FAERS Safety Report 10791260 (Version 1)
Quarter: 2015Q1

REPORT INFORMATION
  Report Type: Report from Study
  Country: NL (occurrence: NL)
  Receive Date: 20150213
  Receipt Date: 20150213
  Transmission Date: 20150721
  Serious: Yes (Other)
  Sender: FDA-Public Use
  Company Number: NL-AMGEN-NLDSL2015012840

PATIENT
  Age: 77 Year
  Sex: Female

DRUGS (1)
  1. XGEVA [Suspect]
     Active Substance: DENOSUMAB
     Indication: PRODUCT USED FOR UNKNOWN INDICATION
     Dosage: 120 MG, Q4WK
     Route: 058
     Dates: start: 20131220

REACTIONS (8)
  - Depression [Unknown]
  - Malaise [Unknown]
  - Pneumonia [Unknown]
  - Fall [Unknown]
  - Fear [Unknown]
  - Influenza [Unknown]
  - Cough [Unknown]
  - Bedridden [Unknown]

NARRATIVE: CASE EVENT DATE: 20150201
